FAERS Safety Report 10299507 (Version 2)
Quarter: 2014Q3

REPORT INFORMATION
  Report Type: Spontaneous
  Country: GB (occurrence: GB)
  Receive Date: 20140711
  Receipt Date: 20140820
  Transmission Date: 20150326
  Serious: Yes (Other)
  Sender: FDA-Public Use
  Company Number: PHHY2014GB083975

PATIENT
  Age: 15 Year
  Sex: Male

DRUGS (1)
  1. RISPERIDONE. [Suspect]
     Active Substance: RISPERIDONE
     Indication: SCHIZOPHRENIA, PARANOID TYPE
     Route: 065

REACTIONS (4)
  - Drug ineffective [Unknown]
  - Suicide attempt [Unknown]
  - Hallucination, auditory [Unknown]
  - Disturbance in attention [Unknown]
